FAERS Safety Report 12485925 (Version 2)
Quarter: 2016Q3

REPORT INFORMATION
  Report Type: Report from Study
  Country: DE (occurrence: DE)
  Receive Date: 20160621
  Receipt Date: 20160715
  Transmission Date: 20161109
  Serious: Yes (Death, Other)
  Sender: FDA-Public Use
  Company Number: PHHY2016DE084718

PATIENT
  Age: 78 Year
  Sex: Male
  Weight: 94 kg

DRUGS (1)
  1. EXJADE [Suspect]
     Active Substance: DEFERASIROX
     Indication: IRON OVERLOAD
     Dosage: 1500 MG(3 X 500 MG), QD
     Route: 065
     Dates: start: 20140616, end: 20160429

REACTIONS (4)
  - Pulseless electrical activity [Fatal]
  - Pneumonia [Fatal]
  - Cerebral infarction [Unknown]
  - Hypoxia [Fatal]

NARRATIVE: CASE EVENT DATE: 201412
